FAERS Safety Report 15058784 (Version 1)
Quarter: 2018Q2

REPORT INFORMATION
  Report Type: Spontaneous
  Country: US (occurrence: US)
  Receive Date: 20180625
  Receipt Date: 20180625
  Transmission Date: 20180711
  Serious: No
  Sender: FDA-Public Use
  Company Number: US-JNJFOC-20180612028

PATIENT
  Sex: Female
  Weight: 58.97 kg

DRUGS (1)
  1. KETOCONAZOLE 2% [Suspect]
     Active Substance: KETOCONAZOLE
     Indication: PRURITUS
     Route: 061
     Dates: start: 201804

REACTIONS (3)
  - Therapeutic response unexpected [Unknown]
  - Product colour issue [Unknown]
  - Product label issue [Unknown]
